FAERS Safety Report 9174060 (Version 3)
Quarter: 2013Q2

REPORT INFORMATION
  Report Type: Spontaneous
  Country: FR (occurrence: None)
  Receive Date: 20130315
  Receipt Date: 20130502
  Transmission Date: 20140414
  Serious: Yes (Other)
  Sender: FDA-Public Use
  Company Number: 2013MPI00074

PATIENT
  Age: 29 Year
  Sex: Female

DRUGS (1)
  1. BRENTUXIMAB VEDOTIN [Suspect]
     Indication: HODGKIN^S DISEASE REFRACTORY
     Dosage: 1.8 MG/KG, Q12D, INTRAVENOUS
     Route: 042
     Dates: start: 20121227, end: 20130411

REACTIONS (5)
  - Lichen nitidus [None]
  - Rash maculo-papular [None]
  - Pruritus [None]
  - Generalised erythema [None]
  - Disease progression [None]
